FAERS Safety Report 26079682 (Version 1)
Quarter: 2025Q4

REPORT INFORMATION
  Report Type: Spontaneous
  Country: US (occurrence: US)
  Receive Date: 20251123
  Receipt Date: 20251123
  Transmission Date: 20260117
  Serious: No
  Sender: JOHNSON AND JOHNSON
  Company Number: US-JNJFOC-20251143494

PATIENT

DRUGS (1)
  1. STELARA [Suspect]
     Active Substance: USTEKINUMAB
     Indication: Product used for unknown indication

REACTIONS (7)
  - Inappropriate schedule of product administration [Unknown]
  - Inflammatory marker increased [Unknown]
  - Bronchitis [Unknown]
  - Arthritis [Unknown]
  - Chest X-ray [Unknown]
  - Urinary tract infection [Unknown]
  - Colonoscopy [Unknown]
